FAERS Safety Report 20395007 (Version 3)
Quarter: 2022Q1

REPORT INFORMATION
  Report Type: Spontaneous
  Country: US (occurrence: None)
  Receive Date: 20220130
  Receipt Date: 20220315
  Transmission Date: 20220423
  Serious: No
  Sender: FDA-Public Use
  Company Number: 2022A030955

PATIENT
  Sex: Male
  Weight: 75.8 kg

DRUGS (3)
  1. BUDESONIDE\FORMOTEROL\GLYCOPYRRONIUM [Suspect]
     Active Substance: BUDESONIDE\FORMOTEROL\GLYCOPYRRONIUM
     Indication: Chronic obstructive pulmonary disease
     Dosage: 2 PUFFS, TWO TIMES A DAY
     Route: 055
     Dates: start: 2021
  2. SYMBICORT [Suspect]
     Active Substance: BUDESONIDE\FORMOTEROL FUMARATE DIHYDRATE
     Indication: Chronic obstructive pulmonary disease
     Dosage: 2 PUFFS, TWO TIMES A DAY
     Route: 055
  3. UNSPECIFIED INGREDIENT [Concomitant]
     Active Substance: UNSPECIFIED INGREDIENT
     Indication: Hypertension

REACTIONS (5)
  - Dyspnoea [Unknown]
  - Drug dose omission by device [Unknown]
  - Therapeutic product effect decreased [Unknown]
  - Wrong technique in device usage process [Unknown]
  - Device delivery system issue [Unknown]
